FAERS Safety Report 12313950 (Version 1)
Quarter: 2016Q2

REPORT INFORMATION
  Report Type: Spontaneous
  Country: US (occurrence: None)
  Receive Date: 20160427
  Receipt Date: 20160427
  Transmission Date: 20160815
  Serious: Yes (Death, Hospitalization, Other)
  Sender: FDA-Public Use
  Company Number: None

PATIENT
  Age: 80 Year
  Sex: Female
  Weight: 63.5 kg

DRUGS (1)
  1. AMIODARONE, 200MG SANDOZ [Suspect]
     Active Substance: AMIODARONE
     Indication: HYPERTENSION

REACTIONS (4)
  - Renal disorder [None]
  - Toxicity to various agents [None]
  - Dyspnoea [None]
  - Lung disorder [None]

NARRATIVE: CASE EVENT DATE: 20151205
